FAERS Safety Report 9203802 (Version 1)
Quarter: 2013Q1

REPORT INFORMATION
  Report Type: Spontaneous
  Country: US (occurrence: None)
  Receive Date: 20130329
  Receipt Date: 20130329
  Transmission Date: 20140127
  Serious: Yes (Other)
  Sender: FDA-Public Use
  Company Number: None

PATIENT
  Age: 43 Year
  Sex: Female
  Weight: 101.15 kg

DRUGS (1)
  1. VENLAFAXINE ER [Suspect]
     Indication: DEPRESSION
     Dosage: BID.
     Route: 048
     Dates: start: 20130227

REACTIONS (3)
  - Anxiety [None]
  - Insomnia [None]
  - Product substitution issue [None]
